FAERS Safety Report 7628750 (Version 1)
Quarter: 2020Q3

REPORT INFORMATION
  Report Type: Report from Study
  Country: SG (occurrence: SG)
  Receive Date: 20101014
  Receipt Date: 20101014
  Transmission Date: 20201104
  Serious: Yes (Hospitalization)
  Sender: FDA-Public Use
  Company Number: SG-WYE-H17979510

PATIENT
  Age: 47 Year
  Sex: Male
  Weight: 72.8 kg

DRUGS (8)
  1. FAMOTIDINE. [Concomitant]
     Active Substance: FAMOTIDINE
     Indication: PROPHYLAXIS
     Route: 048
     Dates: start: 20100831
  2. DEXAMETHASONE. [Suspect]
     Active Substance: DEXAMETHASONE
     Indication: DIFFUSE LARGE B-CELL LYMPHOMA
     Dosage: 40 MG FOR 4 DAYS, SECOND DOSE IN SERIES
     Route: 048
     Dates: start: 20100831
  3. ACYCLOVIR. [Concomitant]
     Active Substance: ACYCLOVIR
     Indication: PROPHYLAXIS
     Route: 048
     Dates: start: 20100831
  4. CISPLATIN. [Suspect]
     Active Substance: CISPLATIN
     Indication: DIFFUSE LARGE B-CELL LYMPHOMA
     Dosage: 50 MG/M^2 ONCE, SECOND DOSE IN SERIES
     Route: 042
     Dates: start: 20100831
  5. INOTUZUMAB OZOGAMICIN [Suspect]
     Active Substance: INOTUZUMAB OZOGAMICIN
     Indication: DIFFUSE LARGE B-CELL LYMPHOMA
     Dosage: 0.8 MG/M^2 ONCE, SECOND DOSE IN SERIES
     Route: 042
     Dates: start: 20100831, end: 20100922
  6. RITUXIMAB. [Suspect]
     Active Substance: RITUXIMAB
     Indication: DIFFUSE LARGE B-CELL LYMPHOMA
     Dosage: 375 MG/M^2 ONCE, SECOND DOSE IN SERIES
     Route: 042
     Dates: start: 20100831
  7. GEMCITABINE. [Suspect]
     Active Substance: GEMCITABINE
     Indication: DIFFUSE LARGE B-CELL LYMPHOMA
     Dosage: 500 MG/M^2 ONCE, SECOND DOSE IN SERIES
     Route: 042
     Dates: start: 20100831
  8. SENNOSIDE A [Concomitant]
     Active Substance: SENNOSIDE A
     Indication: CONSTIPATION
     Dosage: 7.5 MG 2 TABLETS ON
     Route: 048
     Dates: start: 20100927, end: 20101004

REACTIONS (1)
  - Neutropenic sepsis [Not Recovered/Not Resolved]

NARRATIVE: CASE EVENT DATE: 20101004
